FAERS Safety Report 5302192-9 (Version None)
Quarter: 2007Q2

REPORT INFORMATION
  Report Type: 
  Country: None (occurrence: None)
  Receive Date: 20070419
  Receipt Date: 20070412
  Transmission Date: 20071010
  Serious: Yes (Life-Threatening)
  Sender: FDA-Public Use
  Company Number: US-MERCK-0704USA03065

PATIENT
  Age: 62 Year
  Sex: Male
  Weight: 135 kg

DRUGS (6)
  1. PRINIVIL [Suspect]
     Route: 048
  2. ZOCOR [Concomitant]
     Route: 065
  3. ZETIA [Concomitant]
     Route: 065
  4. AMLODIPINE BESYLATE [Concomitant]
     Route: 065
  5. LANSOPRAZOLE [Concomitant]
     Route: 065
  6. VALDECOXIB [Concomitant]
     Route: 065

REACTIONS (3)
  - COMPLEMENT FACTOR C1 DECREASED [None]
  - COMPLEMENT FACTOR C4 DECREASED [None]
  - HEREDITARY ANGIOEDEMA [None]
